FAERS Safety Report 4568415-9 (Version None)
Quarter: 2005Q1

REPORT INFORMATION
  Report Type: 
  Country: None (occurrence: None)
  Receive Date: 20050131
  Receipt Date: 20050113
  Transmission Date: 20050727
  Serious: Yes (Other)
  Sender: FDA-Public Use
  Company Number: 2005-00143

PATIENT
  Age: 3 Month

DRUGS (1)
  1. PREDNISONE [Suspect]
     Indication: HAEMANGIOMA
     Dosage: ^HIGH DOSE^

REACTIONS (1)
  - HYPERTROPHIC OBSTRUCTIVE CARDIOMYOPATHY [None]
